FAERS Safety Report 18754043 (Version 1)
Quarter: 2021Q1

REPORT INFORMATION
  Report Type: Other
  Country: CA (occurrence: CA)
  Receive Date: 20210119
  Receipt Date: 20210119
  Transmission Date: 20210419
  Serious: Yes (Hospitalization)
  Sender: FDA-Public Use
  Company Number: CA-CELLTRION INC.-2021CA000219

PATIENT

DRUGS (13)
  1. ACETAMINOPHEN. [Concomitant]
     Active Substance: ACETAMINOPHEN
     Indication: PREMEDICATION
     Route: 048
  2. WARFARIN [Concomitant]
     Active Substance: WARFARIN
  3. LOSEC [Concomitant]
     Active Substance: OMEPRAZOLE
  4. ACETYLSALICYLIC ACID [Concomitant]
     Active Substance: ASPIRIN
  5. RITUXIMAB (UNKNOWN) [Suspect]
     Active Substance: RITUXIMAB
     Indication: RHEUMATOID ARTHRITIS
     Dosage: 1000 MG, 1 EVERY 2 WEEKS
     Route: 042
  6. ATIVAN [Concomitant]
     Active Substance: LORAZEPAM
  7. COZAAR [Concomitant]
     Active Substance: LOSARTAN POTASSIUM
  8. HYDROMORPHONE [Concomitant]
     Active Substance: HYDROMORPHONE
  9. DESOXIMETASONE. [Concomitant]
     Active Substance: DESOXIMETASONE
  10. DIPHENHYDRAMINE HYDROCHLORIDE. [Concomitant]
     Active Substance: DIPHENHYDRAMINE HYDROCHLORIDE
     Indication: PREMEDICATION
     Route: 048
  11. LIPITOR [Concomitant]
     Active Substance: ATORVASTATIN CALCIUM
     Route: 065
  12. METHYLPREDNISOLONE. [Concomitant]
     Active Substance: METHYLPREDNISOLONE
     Indication: PREMEDICATION
     Route: 042
  13. METOPROLOL. [Concomitant]
     Active Substance: METOPROLOL

REACTIONS (2)
  - Illness [Unknown]
  - Haemoglobin decreased [Unknown]
